FAERS Safety Report 16392052 (Version 1)
Quarter: 2019Q2

REPORT INFORMATION
  Report Type: Spontaneous
  Country: GB (occurrence: GB)
  Receive Date: 20190605
  Receipt Date: 20190605
  Transmission Date: 20190711
  Serious: Yes (Hospitalization)
  Sender: FDA-Public Use
  Company Number: GB-TEVA-2019-GB-1058475

PATIENT
  Age: 22 Year
  Sex: Female

DRUGS (3)
  1. PREDNISOLONE. [Suspect]
     Active Substance: PREDNISOLONE
     Indication: DYSPNOEA
     Route: 065
  2. BETAMETHASONE. [Suspect]
     Active Substance: BETAMETHASONE
     Route: 030
  3. ERYTHROMYCIN. [Interacting]
     Active Substance: ERYTHROMYCIN
     Indication: DYSPNOEA
     Route: 065

REACTIONS (6)
  - Starvation ketoacidosis [Recovered/Resolved]
  - Maternal exposure during pregnancy [Unknown]
  - Condition aggravated [Recovered/Resolved]
  - Drug interaction [Recovered/Resolved]
  - Metabolic acidosis [Recovered/Resolved]
  - Live birth [Unknown]
